FAERS Safety Report 9986646 (Version 1)
Quarter: 2014Q1

REPORT INFORMATION
  Report Type: Report from Study
  Country: US (occurrence: US)
  Receive Date: 20140307
  Receipt Date: 20140307
  Transmission Date: 20141002
  Serious: No
  Sender: FDA-Public Use
  Company Number: US-ABBVIE-13P-163-1082473-00

PATIENT
  Age: 52 Year
  Sex: Male
  Weight: 82.63 kg

DRUGS (4)
  1. HUMIRA [Suspect]
     Indication: COLITIS ULCERATIVE
     Dates: start: 20130403, end: 20130403
  2. HUMIRA [Suspect]
     Dates: start: 20130417, end: 20130417
  3. IMURAN [Concomitant]
     Indication: COLITIS ULCERATIVE
  4. HYDROCODONE [Concomitant]
     Indication: PAIN

REACTIONS (4)
  - Blood testosterone decreased [Unknown]
  - Pyrexia [Not Recovered/Not Resolved]
  - Pain in extremity [Not Recovered/Not Resolved]
  - Hyperhidrosis [Not Recovered/Not Resolved]
